FAERS Safety Report 24322749 (Version 1)
Quarter: 2024Q3

REPORT INFORMATION
  Report Type: Spontaneous
  Country: IN (occurrence: IN)
  Receive Date: 20240916
  Receipt Date: 20240916
  Transmission Date: 20241017
  Serious: Yes (Other)
  Sender: ZYDUS PHARM
  Company Number: IN-CADILA HEALTHCARE LIMITED-IN-ZYDUS-112009

PATIENT

DRUGS (2)
  1. METHOTREXATE [Suspect]
     Active Substance: METHOTREXATE
     Indication: Acute lymphocytic leukaemia
     Dosage: UNK
     Route: 037
  2. METHOTREXATE [Suspect]
     Active Substance: METHOTREXATE
     Indication: Non-Hodgkin^s lymphoma

REACTIONS (2)
  - Seizure [Unknown]
  - Neurotoxicity [Unknown]
